FAERS Safety Report 4796768-5 (Version None)
Quarter: 2005Q4

REPORT INFORMATION
  Report Type: 
  Country: None (occurrence: None)
  Receive Date: 20051013
  Receipt Date: 20050603
  Transmission Date: 20060501
  Serious: Yes (Death)
  Sender: FDA-Public Use
  Company Number: US-AMGEN-US137568

PATIENT
  Sex: Female

DRUGS (3)
  1. PROCRIT [Suspect]
     Indication: PREOPERATIVE CARE
     Route: 058
     Dates: start: 20050429
  2. MORPHINE [Concomitant]
     Route: 042
  3. CEFAZOLIN [Concomitant]
     Route: 042

REACTIONS (2)
  - LOSS OF CONSCIOUSNESS [None]
  - RESPIRATORY FAILURE [None]
